FAERS Safety Report 5738944-0 (Version None)
Quarter: 2008Q2

REPORT INFORMATION
  Report Type: 
  Country: None (occurrence: None)
  Receive Date: 20080515
  Receipt Date: 20080506
  Transmission Date: 20081010
  Serious: Yes (Hospitalization)
  Sender: FDA-Public Use
  Company Number: US-JNJFOC-20080203814

PATIENT
  Sex: Female
  Weight: 71.67 kg

DRUGS (8)
  1. DURAGESIC-100 [Suspect]
     Indication: MULTIPLE SCLEROSIS
     Route: 062
  2. DURAGESIC-100 [Suspect]
     Indication: PAIN
     Route: 062
  3. CELEXA [Concomitant]
     Indication: DEPRESSION
     Route: 048
  4. PROVIGIL [Concomitant]
     Indication: SLEEP DISORDER
     Route: 048
  5. REBIF [Concomitant]
     Indication: MULTIPLE SCLEROSIS
     Route: 058
  6. MS CONTIN [Concomitant]
     Route: 048
  7. MS CONTIN [Concomitant]
     Indication: PAIN
     Route: 048
  8. TOPAMAX [Concomitant]
     Route: 048

REACTIONS (5)
  - APPLICATION SITE RASH [None]
  - EYE PAIN [None]
  - HEADACHE [None]
  - ROAD TRAFFIC ACCIDENT [None]
  - VISION BLURRED [None]
